FAERS Safety Report 7910256-6 (Version None)
Quarter: 2011Q4

REPORT INFORMATION
  Report Type: 
  Country: None (occurrence: None)
  Receive Date: 20111111
  Receipt Date: 20111101
  Transmission Date: 20120403
  Serious: No
  Sender: FDA-Public Use
  Company Number: US-JNJFOC-20111101316

PATIENT
  Sex: Female

DRUGS (1)
  1. FENTANYL-100 [Suspect]
     Indication: PROCEDURAL PAIN
     Route: 062
     Dates: start: 20090401, end: 20090501

REACTIONS (4)
  - OFF LABEL USE [None]
  - BACK INJURY [None]
  - DRUG PRESCRIBING ERROR [None]
  - FALL [None]
